FAERS Safety Report 10347265 (Version 1)
Quarter: 2014Q3

REPORT INFORMATION
  Report Type: Spontaneous
  Country: US (occurrence: None)
  Receive Date: 20140728
  Receipt Date: 20140728
  Transmission Date: 20150326
  Serious: Yes (Other)
  Sender: FDA-Public Use
  Company Number: None

PATIENT
  Age: 42 Year
  Sex: Male
  Weight: 74.84 kg

DRUGS (1)
  1. BENZONATATE. [Suspect]
     Active Substance: BENZONATATE
     Indication: COUGH
     Dosage: 1 ,2-3 TIMES DAILY ORAL
     Route: 048
     Dates: start: 20140115, end: 20140726

REACTIONS (4)
  - Skin fissures [None]
  - Dry skin [None]
  - Skin exfoliation [None]
  - Condition aggravated [None]

NARRATIVE: CASE EVENT DATE: 20140726
